FAERS Safety Report 7164630 (Version 22)
Quarter: 2014Q4

REPORT INFORMATION
  Report Type: Spontaneous
  Country: CA (occurrence: CA)
  Receive Date: 20091102
  Receipt Date: 20141006
  Transmission Date: 20150529
  Serious: Yes (Hospitalization, Other)
  Sender: FDA-Public Use
  Company Number: CA-ROCHE-GNE292850

PATIENT
  Age: 75 Year
  Sex: Female
  Weight: 52.06 kg

DRUGS (12)
  1. FLOVENT [Concomitant]
     Active Substance: FLUTICASONE PROPIONATE
  2. ADVAIR HFA [Concomitant]
     Active Substance: FLUTICASONE PROPIONATE\SALMETEROL XINAFOATE
  3. CORTISONE [Concomitant]
     Active Substance: CORTISONE\HYDROCORTISONE
     Route: 065
  4. XOLAIR [Suspect]
     Active Substance: OMALIZUMAB
     Indication: ASTHMA
     Route: 058
     Dates: start: 20090907
  5. XOLAIR [Suspect]
     Active Substance: OMALIZUMAB
     Route: 058
     Dates: start: 20130616
  6. CORTISONE [Concomitant]
     Active Substance: CORTISONE\HYDROCORTISONE
     Dosage: HIGH DOSES
     Route: 065
  7. XOLAIR [Suspect]
     Active Substance: OMALIZUMAB
     Route: 058
     Dates: start: 20091112
  8. SINGULAIR [Concomitant]
     Active Substance: MONTELUKAST SODIUM
  9. XOLAIR [Suspect]
     Active Substance: OMALIZUMAB
     Dosage: 150 MG, 1/MONTH,  LOT NUMBER: S0078B AND EXPIRY DATE: MAR/2013
     Route: 058
     Dates: start: 20091215
  10. PHYLLOCONTIN [Concomitant]
     Active Substance: AMINOPHYLLINE
  11. XOLAIR [Suspect]
     Active Substance: OMALIZUMAB
     Route: 058
     Dates: start: 20130211
  12. VENTOLIN [Concomitant]
     Active Substance: ALBUTEROL SULFATE
     Indication: PRODUCT USED FOR UNKNOWN INDICATION
     Dosage: 2 PUFF, PRN, DOSE=2 PUFF
     Route: 065

REACTIONS (23)
  - Nasopharyngitis [Unknown]
  - Gastroenteritis [Unknown]
  - Pyrexia [Unknown]
  - Speech disorder [Unknown]
  - Respiratory disorder [Unknown]
  - Fatigue [Unknown]
  - Hearing impaired [Unknown]
  - Herpes zoster [Not Recovered/Not Resolved]
  - Asthma [Not Recovered/Not Resolved]
  - Chronic obstructive pulmonary disease [Unknown]
  - Hypersensitivity [Unknown]
  - Influenza [Unknown]
  - Blood pressure systolic increased [Unknown]
  - Malaise [Unknown]
  - Bronchial obstruction [Not Recovered/Not Resolved]
  - Blood pressure diastolic decreased [Recovered/Resolved]
  - Nausea [Unknown]
  - Localised infection [Unknown]
  - Drug ineffective [Unknown]
  - Balance disorder [Unknown]
  - Oedema peripheral [Unknown]
  - Wheezing [Unknown]
  - Dyspnoea [Unknown]

NARRATIVE: CASE EVENT DATE: 20091016
